FAERS Safety Report 17965710 (Version 13)
Quarter: 2025Q4

REPORT INFORMATION
  Report Type: Report from Study
  Country: US (occurrence: US)
  Receive Date: 20200701
  Receipt Date: 20251223
  Transmission Date: 20260117
  Serious: Yes (Hospitalization, Other)
  Sender: TAKEDA
  Company Number: US-SHIRE-US202021168

PATIENT
  Age: 73 Year
  Sex: Male
  Weight: 97 kg

DRUGS (28)
  1. HUMAN IMMUNOGLOBULIN G [Suspect]
     Active Substance: HUMAN IMMUNOGLOBULIN G
     Indication: Immunodeficiency common variable
     Dosage: 12 GRAM, 1/WEEK
  2. HUMAN IMMUNOGLOBULIN G [Suspect]
     Active Substance: HUMAN IMMUNOGLOBULIN G
     Dosage: 12 GRAM, 1/WEEK
     Dates: start: 20190908
  3. ACETAMINOPHEN [Concomitant]
     Active Substance: ACETAMINOPHEN
     Dosage: UNK
  4. DIPHENHYDRAMINE [Concomitant]
     Active Substance: DIPHENHYDRAMINE
     Dosage: UNK
  5. EPINEPHRINE [Concomitant]
     Active Substance: EPINEPHRINE
     Dosage: UNK
  6. CYMBALTA [Concomitant]
     Active Substance: DULOXETINE HYDROCHLORIDE
     Indication: Immunodeficiency common variable
     Dosage: UNK
  7. AMBIEN [Concomitant]
     Active Substance: ZOLPIDEM TARTRATE
     Dosage: UNK
  8. CELEBREX [Concomitant]
     Active Substance: CELECOXIB
     Dosage: UNK
  9. PREDNISONE [Concomitant]
     Active Substance: PREDNISONE
     Dosage: UNK
  10. BUDESONIDE [Concomitant]
     Active Substance: BUDESONIDE
     Dosage: UNK
  11. FLONASE [Concomitant]
     Active Substance: FLUTICASONE PROPIONATE
     Dosage: UNK
  12. VENTOLIN HFA [Concomitant]
     Active Substance: ALBUTEROL SULFATE
     Dosage: UNK
  13. IMITREX [Concomitant]
     Active Substance: SUMATRIPTAN SUCCINATE
     Dosage: UNK
  14. BISOPROLOL FUMARATE [Concomitant]
     Active Substance: BISOPROLOL FUMARATE
     Dosage: UNK
  15. PULMOZYME [Concomitant]
     Active Substance: DORNASE ALFA
     Dosage: UNK
  16. ALBUTEROL\IPRATROPIUM [Concomitant]
     Active Substance: ALBUTEROL\IPRATROPIUM
     Dosage: UNK
  17. VITAMIN C [Concomitant]
     Active Substance: ASCORBIC ACID
     Dosage: UNK
  18. ECHINACEA [Concomitant]
     Active Substance: ECHINACEA, UNSPECIFIED
     Dosage: UNK
  19. BACTRIM [Concomitant]
     Active Substance: SULFAMETHOXAZOLE\TRIMETHOPRIM
     Dosage: UNK
  20. PERFOROMIST [Concomitant]
     Active Substance: FORMOTEROL FUMARATE DIHYDRATE
     Dosage: UNK
  21. MUCINEX [Concomitant]
     Active Substance: GUAIFENESIN
     Dosage: UNK
  22. FISH OIL [Concomitant]
     Active Substance: FISH OIL
     Dosage: UNK
  23. VALACYCLOVIR [Concomitant]
     Active Substance: VALACYCLOVIR HYDROCHLORIDE
     Indication: Herpes zoster
     Dosage: UNK
  24. FLUTICASONE PROPIONATE [Concomitant]
     Active Substance: FLUTICASONE PROPIONATE
     Dosage: UNK
  25. ALBUTEROL SULFATE [Concomitant]
     Active Substance: ALBUTEROL SULFATE
     Dosage: UNK
  26. TYLENOL [Concomitant]
     Active Substance: ACETAMINOPHEN
     Dosage: UNK
  27. MELOXICAM [Concomitant]
     Active Substance: MELOXICAM
     Dosage: UNK
  28. DIPHENHYDRAMINE HYDROCHLORIDE [Concomitant]
     Active Substance: DIPHENHYDRAMINE HYDROCHLORIDE
     Dosage: UNK

REACTIONS (14)
  - Kidney infection [Unknown]
  - Bacterial infection [Unknown]
  - Infection [Unknown]
  - Lower respiratory tract infection bacterial [Not Recovered/Not Resolved]
  - Pneumonia viral [Unknown]
  - Nephrolithiasis [Unknown]
  - Prostate cancer [Unknown]
  - Sinusitis [Unknown]
  - COVID-19 [Unknown]
  - Herpes zoster [Unknown]
  - Seasonal allergy [Unknown]
  - Nasopharyngitis [Unknown]
  - Multiple allergies [Unknown]
  - Sinus disorder [Unknown]

NARRATIVE: CASE EVENT DATE: 20200620
